FAERS Safety Report 4507531-4 (Version None)
Quarter: 2004Q4

REPORT INFORMATION
  Report Type: 
  Country: None (occurrence: None)
  Receive Date: 20041018
  Receipt Date: 20040810
  Transmission Date: 20050328
  Serious: No
  Sender: FDA-Public Use
  Company Number: 208385

PATIENT
  Age: 66 Year
  Sex: Female

DRUGS (5)
  1. XOLAIR [Suspect]
     Indication: ASTHMA
     Dosage: 300 MG, Q2W, SUBCUTANEOUS
     Route: 058
     Dates: start: 20040216
  2. ATROVENT [Concomitant]
  3. ACTONEL [Concomitant]
  4. INHALED STEROIDS (STEROID NOS) [Concomitant]
  5. STEROID NASAL SPRAY (STEROID NOS) [Concomitant]

REACTIONS (1)
  - BREAST CYST [None]
